FAERS Safety Report 9645839 (Version 2)
Quarter: 2013Q4

REPORT INFORMATION
  Report Type: Report from Study
  Country: CA (occurrence: CA)
  Receive Date: 20131025
  Receipt Date: 20131106
  Transmission Date: 20140711
  Serious: Yes (Hospitalization, Other)
  Sender: FDA-Public Use
  Company Number: CA-ABBVIE-13P-028-1159656-00

PATIENT
  Age: 3 Year
  Sex: Male
  Weight: 14.6 kg

DRUGS (7)
  1. HUMIRA VIAL [Suspect]
     Indication: JUVENILE IDIOPATHIC ARTHRITIS
     Route: 058
     Dates: start: 20130514, end: 20130919
  2. HUMIRA VIAL [Suspect]
     Route: 058
     Dates: start: 20131004
  3. PREDNISONE [Suspect]
     Indication: LIVER TRANSPLANT
     Route: 048
  4. CYCLOSPORIN [Suspect]
     Indication: LIVER TRANSPLANT
     Dates: start: 201010
  5. NADOLOL [Concomitant]
     Indication: PRODUCT USED FOR UNKNOWN INDICATION
     Dates: start: 201010
  6. SEPTRA [Concomitant]
     Indication: PRODUCT USED FOR UNKNOWN INDICATION
     Dates: start: 201010
  7. VITAMIN K [Concomitant]
     Indication: PRODUCT USED FOR UNKNOWN INDICATION

REACTIONS (2)
  - Haemoglobin decreased [Recovered/Resolved]
  - Pyelonephritis [Recovered/Resolved]
